FAERS Safety Report 4694000-4 (Version None)
Quarter: 2005Q2

REPORT INFORMATION
  Report Type: 
  Country: None (occurrence: None)
  Receive Date: 20050616
  Receipt Date: 20050530
  Transmission Date: 20051028
  Serious: Yes (Other)
  Sender: FDA-Public Use
  Company Number: ENT-2005-0071

PATIENT
  Age: 83 Year
  Sex: Male

DRUGS (2)
  1. CAMTAN (COMTESS) (TABLET)  (ENTACAPONE) [Suspect]
     Indication: PARKINSON'S DISEASE
     Dosage: 600 MG, 3 IN 1 D, ORAL
     Route: 048
     Dates: start: 20050517
  2. ARICEPT [Concomitant]

REACTIONS (3)
  - CHROMATURIA [None]
  - HALLUCINATION [None]
  - POLLAKIURIA [None]
